FAERS Safety Report 8848824 (Version 2)
Quarter: 2012Q4

REPORT INFORMATION
  Report Type: Spontaneous
  Country: US (occurrence: None)
  Receive Date: 20121015
  Receipt Date: 20121031
  Transmission Date: 20130627
  Serious: Yes (Death)
  Sender: FDA-Public Use
  Company Number: UTC-023894

PATIENT
  Age: 80 Year
  Sex: Male
  Weight: 70.9 kg

DRUGS (2)
  1. TYVASO (6 MICROGRAM, AEROSOL FOR INHALATION) (TREPROSTINIL SODIUM) [Suspect]
     Indication: PRIMARY PULMONARY HYPERTENSION
     Dosage: 72 mcg (18 mcg, 4 in 1 D), Inhalation
     Route: 055
     Dates: start: 20120829
  2. TRACLEER (BOSENTAN) [Concomitant]

REACTIONS (1)
  - Death [None]
